FAERS Safety Report 5720387-7 (Version None)
Quarter: 2008Q2

REPORT INFORMATION
  Report Type: 
  Country: None (occurrence: None)
  Receive Date: 20080423
  Receipt Date: 20070523
  Transmission Date: 20081010
  Serious: Yes (Death, Other)
  Sender: FDA-Public Use
  Company Number: 241527

PATIENT

DRUGS (2)
  1. AVASTIN [Suspect]
     Indication: SMALL CELL LUNG CANCER STAGE UNSPECIFIED
  2. CHEMOTHERAPY (UNK INGREDIENTS) (ANTINEOPLASTIC AGENT NOS) [Concomitant]

REACTIONS (1)
  - TRACHEO-OESOPHAGEAL FISTULA [None]
